FAERS Safety Report 23524209 (Version 1)
Quarter: 2024Q1

REPORT INFORMATION
  Report Type: Report from Study
  Country: US (occurrence: US)
  Receive Date: 20240214
  Receipt Date: 20240214
  Transmission Date: 20240409
  Serious: Yes (Other)
  Sender: FDA-Public Use
  Company Number: US-TAKEDA-2024TUS012883

PATIENT
  Sex: Male

DRUGS (2)
  1. FRUQUINTINIB [Suspect]
     Active Substance: FRUQUINTINIB
     Indication: Rectosigmoid cancer
     Dosage: 5 MILLIGRAM
     Route: 048
     Dates: start: 20231212
  2. FRUQUINTINIB [Suspect]
     Active Substance: FRUQUINTINIB
     Dosage: UNK
     Route: 048

REACTIONS (2)
  - No adverse event [Unknown]
  - Drug ineffective [Unknown]
